FAERS Safety Report 6421755-0 (Version None)
Quarter: 2009Q4

REPORT INFORMATION
  Report Type: 
  Country: None (occurrence: None)
  Receive Date: 20091029
  Receipt Date: 20091029
  Transmission Date: 20100525
  Serious: Yes (Life-Threatening, Hospitalization, Other)
  Sender: FDA-Public Use
  Company Number: None

PATIENT
  Age: 34 Year
  Sex: Male
  Weight: 77.1115 kg

DRUGS (2)
  1. EFFEXOR XR [Suspect]
     Indication: ANXIETY
     Dosage: 75MG DAILY PO
     Route: 048
     Dates: start: 20090822, end: 20090905
  2. EFFEXOR XR [Suspect]
     Indication: DEPRESSION
     Dosage: 75MG DAILY PO
     Route: 048
     Dates: start: 20090822, end: 20090905

REACTIONS (9)
  - BLOOD BLISTER [None]
  - BLOOD URINE PRESENT [None]
  - DECREASED APPETITE [None]
  - HAEMATOMA [None]
  - HYPERHIDROSIS [None]
  - IDIOPATHIC THROMBOCYTOPENIC PURPURA [None]
  - INSOMNIA [None]
  - ORAL DISORDER [None]
  - TONGUE DISORDER [None]
